FAERS Safety Report 22016822 (Version 1)
Quarter: 2023Q1

REPORT INFORMATION
  Report Type: Spontaneous
  Country: US (occurrence: US)
  Receive Date: 20230221
  Receipt Date: 20230221
  Transmission Date: 20230417
  Serious: No
  Sender: FDA-Public Use
  Company Number: US-SA-SAC20230220000582

PATIENT
  Sex: Male

DRUGS (12)
  1. DUPIXENT [Suspect]
     Active Substance: DUPILUMAB
     Indication: Asthma
     Dosage: 300 MG, QOW
     Route: 058
  2. ALBUTEROL SULFATE [Concomitant]
     Active Substance: ALBUTEROL SULFATE
  3. SYMBICORT [Concomitant]
     Active Substance: BUDESONIDE\FORMOTEROL FUMARATE DIHYDRATE
  4. FLUTICASONE PROPIONATE [Concomitant]
     Active Substance: FLUTICASONE PROPIONATE
  5. MOTRIN IB [Concomitant]
     Active Substance: IBUPROFEN
  6. OMEPRAZOLE [Concomitant]
     Active Substance: OMEPRAZOLE
  7. LOPERAMIDE [Concomitant]
     Active Substance: LOPERAMIDE
  8. MONTELUKAST SODIUM [Concomitant]
     Active Substance: MONTELUKAST SODIUM
  9. ASPIRIN [Concomitant]
     Active Substance: ASPIRIN
  10. METOPROLOL SUCCINATE [Concomitant]
     Active Substance: METOPROLOL SUCCINATE
  11. EZETIMIBE [Concomitant]
     Active Substance: EZETIMIBE
  12. ROSUVASTATIN CALCIUM [Concomitant]
     Active Substance: ROSUVASTATIN CALCIUM

REACTIONS (3)
  - Cough [Unknown]
  - Pyrexia [Unknown]
  - Oropharyngeal pain [Unknown]
